FAERS Safety Report 13106462 (Version 1)
Quarter: 2017Q1

REPORT INFORMATION
  Report Type: Spontaneous
  Country: US (occurrence: US)
  Receive Date: 20170111
  Receipt Date: 20170111
  Transmission Date: 20170428
  Serious: Yes (Other)
  Sender: FDA-Public Use
  Company Number: US-ELI_LILLY_AND_COMPANY-US201701001809

PATIENT
  Sex: Male

DRUGS (3)
  1. HUMALOG [Suspect]
     Active Substance: INSULIN LISPRO
     Dosage: 1-1.5 U, EVERY HOUR
     Route: 058
     Dates: start: 20170102
  2. HUMALOG [Suspect]
     Active Substance: INSULIN LISPRO
     Indication: TYPE 2 DIABETES MELLITUS
     Dosage: 1-1.5 U, EVERY HOUR
     Route: 058
     Dates: start: 2015
  3. HUMALOG [Suspect]
     Active Substance: INSULIN LISPRO
     Dosage: 1-1.5 U, EVERY HOUR
     Route: 058
     Dates: end: 20170102

REACTIONS (6)
  - Hunger [Recovering/Resolving]
  - Drug ineffective [Recovering/Resolving]
  - Fatigue [Recovering/Resolving]
  - Blood glucose increased [Recovering/Resolving]
  - Ketoacidosis [Recovering/Resolving]
  - Feeling abnormal [Recovering/Resolving]

NARRATIVE: CASE EVENT DATE: 20161219
